FAERS Safety Report 11758459 (Version 2)
Quarter: 2016Q1

REPORT INFORMATION
  Report Type: Spontaneous
  Country: US (occurrence: US)
  Receive Date: 20151120
  Receipt Date: 20160113
  Transmission Date: 20160525
  Serious: No
  Sender: FDA-Public Use
  Company Number: US-PFIZER INC-2015361781

PATIENT
  Age: 64 Year
  Sex: Female

DRUGS (1)
  1. NITROSTAT [Suspect]
     Active Substance: NITROGLYCERIN
     Indication: ANGINA PECTORIS
     Dosage: 0.6 MG, AS NEEDED
     Route: 060
     Dates: start: 20151022

REACTIONS (2)
  - Drug ineffective [Unknown]
  - Product quality issue [Unknown]
